FAERS Safety Report 24856145 (Version 1)
Quarter: 2025Q1

REPORT INFORMATION
  Report Type: Spontaneous
  Country: FI (occurrence: FI)
  Receive Date: 20250117
  Receipt Date: 20250117
  Transmission Date: 20250408
  Serious: Yes (Other)
  Sender: PFIZER
  Company Number: None

PATIENT
  Age: 26 Year
  Sex: Female

DRUGS (5)
  1. FOSPHENYTOIN SODIUM [Suspect]
     Active Substance: FOSPHENYTOIN SODIUM
     Indication: Cluster headache
     Route: 042
     Dates: start: 202412, end: 202412
  2. XOLAIR [Concomitant]
     Active Substance: OMALIZUMAB
     Route: 058
  3. VYEPTI [Concomitant]
     Active Substance: EPTINEZUMAB-JJMR
  4. GABAPENTIN [Concomitant]
     Active Substance: GABAPENTIN
     Route: 048
  5. TOPIRAMAT ORION [Concomitant]
     Route: 048

REACTIONS (4)
  - Psychotic symptom [Recovered/Resolved]
  - Hallucination [Recovered/Resolved]
  - Confusional state [Recovered/Resolved]
  - Off label use [Unknown]

NARRATIVE: CASE EVENT DATE: 20241201
